FAERS Safety Report 14939349 (Version 1)
Quarter: 2018Q2

REPORT INFORMATION
  Report Type: Spontaneous
  Country: US (occurrence: US)
  Receive Date: 20180525
  Receipt Date: 20180525
  Transmission Date: 20180711
  Serious: Yes (Other)
  Sender: FDA-Public Use
  Company Number: US-SA-2018SA137938

PATIENT
  Age: 69 Year
  Sex: Female
  Weight: 81.64 kg

DRUGS (7)
  1. TAXOTERE [Suspect]
     Active Substance: DOCETAXEL
     Indication: PRODUCT USED FOR UNKNOWN INDICATION
     Dosage: 146 MG, Q3W
     Route: 051
     Dates: start: 20150128, end: 20150128
  2. ADRIAMYCIN [DOXORUBICIN] [Concomitant]
  3. TAXOTERE [Suspect]
     Active Substance: DOCETAXEL
     Dosage: 146 UNK
     Route: 051
     Dates: start: 20150513, end: 20150513
  4. TYLENOL WITH CODEINE [Concomitant]
     Active Substance: ACETAMINOPHEN\CODEINE PHOSPHATE
  5. TEMAZEPAM. [Concomitant]
     Active Substance: TEMAZEPAM
  6. NEOSAR [Concomitant]
     Active Substance: CYCLOPHOSPHAMIDE
  7. PROCHLORPERAZINE MALEATE. [Concomitant]
     Active Substance: PROCHLORPERAZINE MALEATE

REACTIONS (1)
  - Alopecia [Not Recovered/Not Resolved]

NARRATIVE: CASE EVENT DATE: 20150513
